FAERS Safety Report 8711875 (Version 2)
Quarter: 2012Q4

REPORT INFORMATION
  Report Type: 
  Country: HU (occurrence: HU)
  Receive Date: 20120807
  Receipt Date: 20120831
  Transmission Date: 20130627
  Serious: Yes (Death, Hospitalization)
  Sender: FDA-Public Use
  Company Number: HU-BAXTER-2012BAX013091

PATIENT
  Age: 73 Year
  Sex: Male

DRUGS (1)
  1. DIANEAL [Suspect]
     Indication: PERITONEAL DIALYSIS
     Route: 033
     Dates: start: 20120622

REACTIONS (3)
  - Arrhythmia [Fatal]
  - Peritonitis bacterial [Recovered/Resolved]
  - Staphylococcus test positive [None]
